FAERS Safety Report 6443547-9 (Version None)
Quarter: 2009Q4

REPORT INFORMATION
  Report Type: 
  Country: None (occurrence: None)
  Receive Date: 20091117
  Receipt Date: 20091110
  Transmission Date: 20100525
  Serious: Yes (Hospitalization)
  Sender: FDA-Public Use
  Company Number: CO-ROCHE-667620

PATIENT
  Sex: Female

DRUGS (2)
  1. XELODA [Suspect]
     Route: 048
     Dates: start: 20090901
  2. AVASTIN [Suspect]
     Route: 042
     Dates: start: 20090901

REACTIONS (2)
  - DUODENAL ULCER [None]
  - GASTRITIS [None]
